FAERS Safety Report 14900311 (Version 1)
Quarter: 2018Q2

REPORT INFORMATION
  Report Type: Spontaneous
  Country: US (occurrence: US)
  Receive Date: 20180516
  Receipt Date: 20180516
  Transmission Date: 20180711
  Serious: Yes (Life-Threatening, Hospitalization, Disabling)
  Sender: FDA-Public Use
  Company Number: US-ELI_LILLY_AND_COMPANY-US201805004876

PATIENT
  Age: 32 Year
  Sex: Male
  Weight: 103 kg

DRUGS (16)
  1. FLUOXETINE HYDROCHLORIDE. [Suspect]
     Active Substance: FLUOXETINE HYDROCHLORIDE
     Indication: DEPRESSION
     Dosage: 60 MG, UNKNOWN
     Route: 048
  2. DEPAKOTE [Concomitant]
     Active Substance: DIVALPROEX SODIUM
     Indication: PRODUCT USED FOR UNKNOWN INDICATION
     Dosage: UNK, UNKNOWN
     Route: 065
  3. PREPARATION H                      /00611001/ [Concomitant]
     Active Substance: PHENYLMERCURIC NITRATE\SHARK LIVER OIL\YEAST
     Indication: PRODUCT USED FOR UNKNOWN INDICATION
     Dosage: UNK UNK, UNKNOWN
     Route: 065
  4. PATANOL [Concomitant]
     Active Substance: OLOPATADINE HYDROCHLORIDE
     Indication: PRODUCT USED FOR UNKNOWN INDICATION
     Dosage: UNK, UNKNOWN
     Route: 047
     Dates: start: 19990513
  5. IBUPROFEN. [Suspect]
     Active Substance: IBUPROFEN
     Indication: BACK PAIN
     Dosage: UNK UNK, UNKNOWN
     Route: 048
  6. ERYTHROMYCIN. [Concomitant]
     Active Substance: ERYTHROMYCIN
     Indication: PRODUCT USED FOR UNKNOWN INDICATION
     Dosage: UNK, UNKNOWN
     Route: 065
  7. ROXICET [Concomitant]
     Active Substance: ACETAMINOPHEN\OXYCODONE HYDROCHLORIDE
     Indication: PRODUCT USED FOR UNKNOWN INDICATION
     Dosage: UNK, UNKNOWN
     Route: 065
  8. ANUSOL                             /01604901/ [Concomitant]
     Indication: PRODUCT USED FOR UNKNOWN INDICATION
     Dosage: UNK UNK, UNKNOWN
     Route: 065
  9. AZITHROMYCIN ANHYDROUS. [Suspect]
     Active Substance: AZITHROMYCIN ANHYDROUS
     Indication: EAR INFECTION
     Dosage: DAILY DOSE: 500MILLIGRAM
     Route: 048
     Dates: start: 19990927, end: 19991001
  10. ALLEGRA-D [Concomitant]
     Active Substance: FEXOFENADINE\PSEUDOEPHEDRINE
     Indication: PRODUCT USED FOR UNKNOWN INDICATION
     Dosage: UNK, UNKNOWN
     Route: 065
     Dates: start: 19990513
  11. AZITHROMYCIN ANHYDROUS. [Suspect]
     Active Substance: AZITHROMYCIN ANHYDROUS
     Indication: UPPER RESPIRATORY TRACT INFECTION
     Dosage: 500 MG, UNKNOWN
     Route: 048
     Dates: start: 19990927, end: 19991001
  12. NORTRIPTYLINE [Suspect]
     Active Substance: NORTRIPTYLINE
     Indication: DEPRESSION
     Dosage: 25 MG, UNKNOWN
     Route: 048
  13. CLARITIN [Concomitant]
     Active Substance: LORATADINE
     Indication: PRODUCT USED FOR UNKNOWN INDICATION
     Dosage: UNK UNK, UNKNOWN
     Route: 065
  14. AZITHROMYCIN ANHYDROUS. [Suspect]
     Active Substance: AZITHROMYCIN ANHYDROUS
     Indication: EAR INFECTION
     Dosage: DAILY DOSE: 500MILLIGRAM
     Route: 048
     Dates: start: 19990927, end: 19991001
  15. ZINACEF [Concomitant]
     Active Substance: CEFUROXIME SODIUM
     Indication: PRODUCT USED FOR UNKNOWN INDICATION
     Dosage: UNK UNK, UNKNOWN
     Route: 065
  16. PREDNISONE. [Concomitant]
     Active Substance: PREDNISONE
     Indication: PRODUCT USED FOR UNKNOWN INDICATION
     Dosage: UNK, UNKNOWN
     Route: 065
     Dates: start: 19990513

REACTIONS (40)
  - Cytomegalovirus infection [Recovering/Resolving]
  - Hiatus hernia [Recovering/Resolving]
  - Liver transplant rejection [Recovering/Resolving]
  - Cardiomegaly [Recovering/Resolving]
  - Jaundice [Recovering/Resolving]
  - Splenomegaly [Recovering/Resolving]
  - White blood cell count decreased [Recovering/Resolving]
  - Oesophagitis [Recovering/Resolving]
  - Hepatic encephalopathy [Recovering/Resolving]
  - Cardiac valve vegetation [Recovering/Resolving]
  - Tremor [Recovering/Resolving]
  - Anogenital warts [Recovering/Resolving]
  - Hepatotoxicity [Recovering/Resolving]
  - Anaemia [Recovering/Resolving]
  - Blood pressure increased [Recovering/Resolving]
  - Chordae tendinae rupture [Recovering/Resolving]
  - Lymphadenopathy [Recovering/Resolving]
  - Hyperkalaemia [Recovering/Resolving]
  - Insomnia [Recovering/Resolving]
  - Liver disorder [Recovering/Resolving]
  - Duodenitis haemorrhagic [Recovering/Resolving]
  - Atelectasis [Recovering/Resolving]
  - Skin papilloma [Recovering/Resolving]
  - Electrocardiogram ST segment elevation [Recovering/Resolving]
  - Agitation [Recovering/Resolving]
  - Staphylococcal infection [Recovering/Resolving]
  - Constipation [Recovering/Resolving]
  - Acne [Recovering/Resolving]
  - Rash macular [Recovering/Resolving]
  - Coagulopathy [Recovering/Resolving]
  - Myocardial infarction [Recovering/Resolving]
  - Pleural effusion [Recovering/Resolving]
  - Hepatic cirrhosis [Recovering/Resolving]
  - Liver function test increased [Recovering/Resolving]
  - Alopecia [Recovering/Resolving]
  - Hepatic failure [Recovering/Resolving]
  - Pericarditis [Recovering/Resolving]
  - Hepatic necrosis [Recovering/Resolving]
  - Weight decreased [Recovering/Resolving]
  - Sinus tachycardia [Recovering/Resolving]

NARRATIVE: CASE EVENT DATE: 19991011
